FAERS Safety Report 14974905 (Version 3)
Quarter: 2018Q2

REPORT INFORMATION
  Report Type: Spontaneous
  Country: US (occurrence: US)
  Receive Date: 20180605
  Receipt Date: 20180614
  Transmission Date: 20180711
  Serious: No
  Sender: FDA-Public Use
  Company Number: US-PFIZER INC-2018226712

PATIENT
  Sex: Female

DRUGS (3)
  1. SYNTHROID [Suspect]
     Active Substance: LEVOTHYROXINE SODIUM
     Dosage: UNK
  2. LEVOXYL [Suspect]
     Active Substance: LEVOTHYROXINE SODIUM
     Dosage: 50 UG, UNK
  3. VITAMIN D [Concomitant]
     Active Substance: CHOLECALCIFEROL
     Dosage: UNK

REACTIONS (34)
  - Pharyngeal oedema [Unknown]
  - Dry skin [Unknown]
  - Peripheral coldness [Unknown]
  - Insomnia [Unknown]
  - Alopecia [Recovered/Resolved]
  - Abdominal distension [Unknown]
  - Muscle spasms [Unknown]
  - Irritable bowel syndrome [Unknown]
  - Blood pressure decreased [Recovering/Resolving]
  - Fatigue [Recovering/Resolving]
  - Dehydration [Unknown]
  - Asthenia [Unknown]
  - Feeling of relaxation [Recovering/Resolving]
  - Chest pain [Recovering/Resolving]
  - Skin hypertrophy [Unknown]
  - Skin exfoliation [Unknown]
  - Diarrhoea [Unknown]
  - Flatulence [Unknown]
  - Throat irritation [Unknown]
  - Dysphemia [Unknown]
  - Nasopharyngitis [Unknown]
  - Brachioradial pruritus [Unknown]
  - Arthralgia [Unknown]
  - Headache [Unknown]
  - Nausea [Unknown]
  - Crystal urine [Unknown]
  - Drug dose omission [Unknown]
  - Hair texture abnormal [Recovering/Resolving]
  - Hyperhidrosis [Recovering/Resolving]
  - Heart rate increased [Recovering/Resolving]
  - Dry mouth [Unknown]
  - Loss of personal independence in daily activities [Unknown]
  - Abdominal pain [Unknown]
  - Malaise [Unknown]
